FAERS Safety Report 7061104-0 (Version None)
Quarter: 2010Q4

REPORT INFORMATION
  Report Type: 
  Country: None (occurrence: None)
  Receive Date: 20101026
  Receipt Date: 20101014
  Transmission Date: 20110411
  Serious: Yes (Other)
  Sender: FDA-Public Use
  Company Number: CH-PFIZER INC-2010130957

PATIENT
  Age: 54 Year
  Sex: Male

DRUGS (2)
  1. SUTENT [Suspect]
     Dosage: 50 MG, 1X/DAY
     Dates: start: 20100101
  2. SUTENT [Suspect]
     Dosage: 37.5 MG, 1X/DAY
     Dates: end: 20100901

REACTIONS (1)
  - DRUG TOXICITY [None]
